FAERS Safety Report 18711026 (Version 3)
Quarter: 2021Q1

REPORT INFORMATION
  Report Type: Report from Study
  Country: US (occurrence: US)
  Receive Date: 20210107
  Receipt Date: 20210217
  Transmission Date: 20210419
  Serious: No
  Sender: FDA-Public Use
  Company Number: NVSC2021US001815

PATIENT
  Age: 76 Year
  Sex: Female

DRUGS (3)
  1. COSENTYX [Suspect]
     Active Substance: SECUKINUMAB
     Dosage: 150 MG, QW (FOR FIVE WEEKS AND THEN Q FOUR WEEKS)
     Route: 058
     Dates: start: 20201102
  2. COSENTYX [Suspect]
     Active Substance: SECUKINUMAB
     Dosage: UNK ( FREQUENCY AS NEEDED)
     Route: 058
  3. COSENTYX [Suspect]
     Active Substance: SECUKINUMAB
     Indication: ANKYLOSING SPONDYLITIS
     Dosage: 150 MG, QW (FOR FIVE WEEKS AND THEN EVERY FOUR WEEKS, BENEATH THE SKIN USUALLY VIA INJECTION)
     Route: 058
     Dates: start: 20201002

REACTIONS (5)
  - Pain [Unknown]
  - Inflammation [Unknown]
  - Drug ineffective [Unknown]
  - Neuralgia [Unknown]
  - Gait inability [Unknown]

NARRATIVE: CASE EVENT DATE: 20201102
